FAERS Safety Report 8400056-5 (Version None)
Quarter: 2012Q2

REPORT INFORMATION
  Report Type: 
  Country: None (occurrence: None)
  Receive Date: 20120531
  Receipt Date: 20120517
  Transmission Date: 20120825
  Serious: Yes (Hospitalization)
  Sender: FDA-Public Use
  Company Number: US-CELGENEUS-163-21880-10081542

PATIENT
  Sex: Male
  Weight: 82.2 kg

DRUGS (34)
  1. SEROQUEL [Concomitant]
     Dosage: 25 MILLIGRAM
     Route: 048
  2. VANCOMYCIN [Concomitant]
     Indication: PROPHYLAXIS
     Dosage: 1 GRAM
     Route: 041
     Dates: start: 20100615, end: 20100617
  3. ATIVAN [Concomitant]
     Indication: INSOMNIA
     Dosage: 1 MILLIGRAM
     Route: 048
     Dates: start: 20100807, end: 20100807
  4. LIPITOR [Concomitant]
     Route: 048
  5. AMBIEN [Concomitant]
     Route: 065
  6. HYDROMORPHONE HCL [Concomitant]
     Indication: PAIN
     Dosage: 2 MILLIGRAM
     Route: 041
     Dates: start: 20100615, end: 20100617
  7. ALLOPURINOL [Concomitant]
     Route: 048
  8. SUBOXONE [Concomitant]
     Route: 065
  9. DEXAMETHASONE [Suspect]
     Dosage: 20 MILLIGRAM
     Route: 048
  10. REVLIMID [Suspect]
     Indication: MULTIPLE MYELOMA
     Dosage: 25 MILLIGRAM
     Route: 048
     Dates: start: 20100608
  11. DEXAMETHASONE [Suspect]
     Indication: MULTIPLE MYELOMA
     Dosage: 40 MILLIGRAM
     Route: 048
     Dates: start: 20100608, end: 20100628
  12. DOCUSATE SODIUM [Concomitant]
     Dosage: 100 MILLIGRAM
     Route: 048
     Dates: start: 20100520
  13. LACTULOSE [Concomitant]
     Dosage: 20 GRAM
     Route: 048
     Dates: start: 20100520
  14. SEROQUEL [Concomitant]
     Indication: AGITATION
     Dosage: 100 MILLIGRAM
     Route: 048
     Dates: start: 20100520
  15. ZOLOFT [Concomitant]
     Dosage: 150 MILLIGRAM
     Route: 048
     Dates: start: 20100628, end: 20100716
  16. CEFEPIME [Concomitant]
     Indication: PROPHYLAXIS
     Dosage: 2 GRAM
     Route: 041
     Dates: start: 20100615, end: 20100617
  17. FAMVIR [Concomitant]
     Indication: ANTIVIRAL PROPHYLAXIS
     Dosage: 500 MILLIGRAM
     Route: 048
     Dates: start: 20100524
  18. ZOLOFT [Concomitant]
     Dosage: 100 MILLIGRAM
     Route: 048
     Dates: start: 20100717, end: 20100717
  19. ZOLOFT [Concomitant]
     Dosage: 100 MILLIGRAM
     Route: 048
     Dates: start: 20100729
  20. PERCOCET [Concomitant]
     Route: 065
     Dates: start: 20100724
  21. PROTONIX [Concomitant]
     Dosage: 40 MILLIGRAM
     Route: 048
     Dates: start: 20100520
  22. ASPIRIN [Concomitant]
     Indication: ANTICOAGULANT THERAPY
     Dosage: 325 MILLIGRAM
     Route: 048
     Dates: start: 20100608, end: 20100621
  23. ZOLOFT [Concomitant]
     Indication: DEPRESSION
     Route: 065
  24. ZOLOFT [Concomitant]
     Dosage: 100 MILLIGRAM
     Route: 048
     Dates: start: 20100616, end: 20100627
  25. PNEUMOCOCCAL VACCINE [Concomitant]
     Indication: PROPHYLAXIS
     Dosage: .5 MILLILITER
     Route: 030
     Dates: start: 20100716, end: 20100716
  26. AZITHROMYCIN [Concomitant]
     Indication: PROPHYLAXIS
     Dosage: 25 MILLIGRAM
     Route: 048
     Dates: start: 20100608, end: 20100612
  27. LOVENOX [Concomitant]
     Indication: ANTICOAGULANT THERAPY
     Dosage: 40 MILLIGRAM
     Route: 058
     Dates: start: 20100622
  28. ARIXTRA [Concomitant]
     Route: 065
  29. ATENOLOL [Concomitant]
     Indication: HYPERTENSION
     Dosage: 50 MILLIGRAM
     Route: 048
     Dates: start: 20100513
  30. OXYCODONE HYDROCHLORIDE [Concomitant]
     Dosage: 5 MILLIGRAM
     Route: 048
     Dates: start: 20100601
  31. PREDNISONE TAB [Concomitant]
     Indication: FATIGUE
     Dosage: 20 MILLIGRAM
     Route: 048
     Dates: start: 20100716, end: 20100728
  32. PREDNISONE TAB [Concomitant]
     Dosage: 10 MILLIGRAM
     Route: 065
     Dates: start: 20100801
  33. COLCHICINE [Concomitant]
     Route: 048
  34. ZOLPIDEM TARTRATE [Concomitant]
     Route: 048

REACTIONS (2)
  - PSYCHOTIC DISORDER [None]
  - SUBSTANCE-INDUCED PSYCHOTIC DISORDER [None]
